FAERS Safety Report 12077971 (Version 1)
Quarter: 2016Q1

REPORT INFORMATION
  Report Type: Spontaneous
  Country: NO (occurrence: NO)
  Receive Date: 20160215
  Receipt Date: 20160215
  Transmission Date: 20160526
  Serious: Yes (Other)
  Sender: FDA-Public Use
  Company Number: NO-BAUSCH-BL-2016-002958

PATIENT
  Sex: Male

DRUGS (3)
  1. METOCLOPRAMIDE. [Suspect]
     Active Substance: METOCLOPRAMIDE
     Indication: PRODUCT USED FOR UNKNOWN INDICATION
     Route: 065
  2. SALBUTAMOL [Suspect]
     Active Substance: ALBUTEROL
     Indication: PRODUCT USED FOR UNKNOWN INDICATION
     Route: 065
  3. ERYTHROMYCIN. [Suspect]
     Active Substance: ERYTHROMYCIN
     Indication: PRODUCT USED FOR UNKNOWN INDICATION
     Route: 065

REACTIONS (5)
  - Dyspnoea [Unknown]
  - Tachycardia [Unknown]
  - Electrocardiogram T wave inversion [Recovered/Resolved]
  - Tachypnoea [Unknown]
  - Palpitations [Unknown]
